FAERS Safety Report 10184103 (Version 1)
Quarter: 2014Q2

REPORT INFORMATION
  Report Type: Spontaneous
  Country: US (occurrence: US)
  Receive Date: 20140520
  Receipt Date: 20140520
  Transmission Date: 20141212
  Serious: No
  Sender: FDA-Public Use
  Company Number: US-ASTRAZENECA-2013SE68238

PATIENT
  Age: 59 Year
  Sex: Female
  Weight: 52.2 kg

DRUGS (2)
  1. ENTOCORT EC [Suspect]
     Indication: CROHN^S DISEASE
     Route: 048
     Dates: start: 20130909
  2. ASACOL [Concomitant]
     Dosage: 800MG

REACTIONS (2)
  - Headache [Unknown]
  - Heart rate irregular [Unknown]
